FAERS Safety Report 4471386-7 (Version None)
Quarter: 2004Q4

REPORT INFORMATION
  Report Type: 
  Country: None (occurrence: None)
  Receive Date: 20041012
  Receipt Date: 20041001
  Transmission Date: 20050328
  Serious: Yes (Life-Threatening, Other)
  Sender: FDA-Public Use
  Company Number: CA-JNJFOC-20040502298

PATIENT
  Age: 32 Year
  Sex: Male

DRUGS (3)
  1. DURAGESIC [Suspect]
     Route: 062
  2. DURAGESIC [Suspect]
     Route: 062
  3. DURAGESIC [Suspect]
     Indication: INTENTIONAL MISUSE
     Route: 062

REACTIONS (4)
  - COMA [None]
  - INTENTIONAL MISUSE [None]
  - MEDICATION ERROR [None]
  - OVERDOSE [None]
